FAERS Safety Report 9881469 (Version 1)
Quarter: 2014Q1

REPORT INFORMATION
  Report Type: Spontaneous
  Country: US (occurrence: US)
  Receive Date: 20140207
  Receipt Date: 20140207
  Transmission Date: 20141002
  Serious: No
  Sender: FDA-Public Use
  Company Number: US-009507513-1402USA000462

PATIENT
  Age: 54 Year
  Sex: Male

DRUGS (2)
  1. JANUMET XR [Suspect]
     Indication: TYPE 2 DIABETES MELLITUS
     Dosage: UNK, QD
     Route: 048
     Dates: start: 201401, end: 201401
  2. JANUMET XR [Suspect]
     Dosage: UNK
     Route: 048
     Dates: start: 201401

REACTIONS (2)
  - Pruritus generalised [Recovered/Resolved]
  - Prescribed underdose [Unknown]
